FAERS Safety Report 20328555 (Version 1)
Quarter: 2022Q1

REPORT INFORMATION
  Report Type: Report from Study
  Country: TR (occurrence: TR)
  Receive Date: 20220112
  Receipt Date: 20220112
  Transmission Date: 20220423
  Serious: Yes (Hospitalization)
  Sender: FDA-Public Use
  Company Number: TR-PFIZER INC-202200009921

PATIENT
  Age: 10 Year
  Sex: Male
  Weight: 18 kg

DRUGS (3)
  1. VANCOMYCIN [Suspect]
     Active Substance: VANCOMYCIN
     Dosage: 360 MG, DAILY
     Route: 042
     Dates: start: 20201129, end: 20201205
  2. COLISTIN [Concomitant]
     Active Substance: COLISTIN
     Dosage: UNK
  3. LINEZOLID [Concomitant]
     Active Substance: LINEZOLID
     Dosage: UNK

REACTIONS (1)
  - Blood creatinine increased [Recovering/Resolving]

NARRATIVE: CASE EVENT DATE: 20201205
